FAERS Safety Report 6264282-6 (Version None)
Quarter: 2009Q3

REPORT INFORMATION
  Report Type: 
  Country: None (occurrence: None)
  Receive Date: 20090708
  Receipt Date: 20090624
  Transmission Date: 20100115
  Serious: Yes (Disabling)
  Sender: FDA-Public Use
  Company Number: 2009-02619

PATIENT
  Age: 54 Year
  Sex: Female
  Weight: 60 kg

DRUGS (4)
  1. VELCADE [Suspect]
     Indication: MULTIPLE MYELOMA
     Dosage: 2.1 MG, INTRAVENOUS; 1.7 MG, INTRAVENOUS
     Route: 042
     Dates: start: 20080212, end: 20081008
  2. VELCADE [Suspect]
     Indication: MULTIPLE MYELOMA
     Dosage: 2.1 MG, INTRAVENOUS; 1.7 MG, INTRAVENOUS
     Route: 042
     Dates: start: 20081009, end: 20090105
  3. ZOLEDRONIC ACID [Concomitant]
  4. ACYCLOVIR [Concomitant]

REACTIONS (2)
  - COGNITIVE DISORDER [None]
  - MEMORY IMPAIRMENT [None]
